FAERS Safety Report 8312599-3 (Version None)
Quarter: 2012Q2

REPORT INFORMATION
  Report Type: 
  Country: None (occurrence: None)
  Receive Date: 20120424
  Receipt Date: 20120420
  Transmission Date: 20120825
  Serious: Yes (Life-Threatening, Hospitalization, Other)
  Sender: FDA-Public Use
  Company Number: ADR-2011-11299

PATIENT
  Sex: Male

DRUGS (2)
  1. LIORESAL [Suspect]
     Indication: CEREBRAL PALSY
     Dosage: SEE B5
  2. LIORESAL [Suspect]
     Indication: MUSCLE SPASTICITY
     Dosage: SEE B5

REACTIONS (17)
  - HYPOKALAEMIA [None]
  - BRADYCARDIA [None]
  - CONVULSION [None]
  - HYPOTENSION [None]
  - LETHARGY [None]
  - FLUSHING [None]
  - MENTAL STATUS CHANGES [None]
  - HYPERNATRAEMIA [None]
  - TREMOR [None]
  - GASTROOESOPHAGEAL REFLUX DISEASE [None]
  - HYPERTONIA [None]
  - PAIN [None]
  - BLOOD CREATINE PHOSPHOKINASE INCREASED [None]
  - SOMNOLENCE [None]
  - URINARY TRACT INFECTION [None]
  - URINARY RETENTION [None]
  - PYREXIA [None]
